FAERS Safety Report 13919017 (Version 1)
Quarter: 2017Q3

REPORT INFORMATION
  Report Type: Spontaneous
  Country: US (occurrence: US)
  Receive Date: 20170830
  Receipt Date: 20170830
  Transmission Date: 20171127
  Serious: No
  Sender: FDA-Public Use
  Company Number: US-BRISTOL-MYERS SQUIBB COMPANY-BMS-2017-076214

PATIENT
  Sex: Male
  Weight: 78.91 kg

DRUGS (1)
  1. ELIQUIS [Suspect]
     Active Substance: APIXABAN
     Indication: THROMBOSIS
     Dosage: 5 MG, QD
     Route: 048

REACTIONS (3)
  - Off label use [Unknown]
  - Faeces discoloured [Unknown]
  - Product use in unapproved indication [Unknown]
